FAERS Safety Report 8203734-6 (Version None)
Quarter: 2012Q1

REPORT INFORMATION
  Report Type: 
  Country: None (occurrence: None)
  Receive Date: 20120308
  Receipt Date: 20120228
  Transmission Date: 20120608
  Serious: Yes (Hospitalization, Other)
  Sender: FDA-Public Use
  Company Number: 2010SP064697

PATIENT
  Age: 20 Year
  Sex: Female
  Weight: 103.4201 kg

DRUGS (2)
  1. VITAMIN TAB [Concomitant]
  2. NUVARING [Suspect]
     Indication: CONTRACEPTION
     Dates: start: 20031106, end: 20081217

REACTIONS (51)
  - ACQUIRED DIAPHRAGMATIC EVENTRATION [None]
  - AGGRESSION [None]
  - FOREIGN BODY [None]
  - PULMONARY NECROSIS [None]
  - LIPOMA [None]
  - JOINT EFFUSION [None]
  - COMPLICATION OF DEVICE INSERTION [None]
  - LACERATION [None]
  - HYPERCOAGULATION [None]
  - NASOPHARYNGITIS [None]
  - OBESITY [None]
  - FIBRIN D DIMER INCREASED [None]
  - AGITATION [None]
  - UPPER LIMB FRACTURE [None]
  - BONE FRAGMENTATION [None]
  - LEUKOCYTOSIS [None]
  - PYREXIA [None]
  - CHEST PAIN [None]
  - URINARY TRACT INFECTION [None]
  - CONCUSSION [None]
  - OROPHARYNGEAL PAIN [None]
  - TENDON DISORDER [None]
  - TENDONITIS [None]
  - VOMITING [None]
  - POST PROCEDURAL HAEMORRHAGE [None]
  - ATELECTASIS [None]
  - PLEURAL EFFUSION [None]
  - HIRSUTISM [None]
  - PLATELET COUNT INCREASED [None]
  - MUSCLE SPASMS [None]
  - PATELLOFEMORAL PAIN SYNDROME [None]
  - SINUS TACHYCARDIA [None]
  - MULTIPLE INJURIES [None]
  - UPPER RESPIRATORY TRACT INFECTION [None]
  - PAIN [None]
  - ECCHYMOSIS [None]
  - PULMONARY EMBOLISM [None]
  - CHLAMYDIAL INFECTION [None]
  - HORMONE LEVEL ABNORMAL [None]
  - ACNE [None]
  - POLYCYSTIC OVARIES [None]
  - STRESS [None]
  - ANXIETY [None]
  - ROAD TRAFFIC ACCIDENT [None]
  - STREPTOCOCCUS TEST POSITIVE [None]
  - PHARYNGITIS [None]
  - PULMONARY INFARCTION [None]
  - PAIN IN EXTREMITY [None]
  - DYSPNOEA [None]
  - PROTEIN S DECREASED [None]
  - HEADACHE [None]
